FAERS Safety Report 4692560-0 (Version None)
Quarter: 2005Q2

REPORT INFORMATION
  Report Type: 
  Country: None (occurrence: None)
  Receive Date: 20050617
  Receipt Date: 20050607
  Transmission Date: 20051028
  Serious: Yes (Life-Threatening)
  Sender: FDA-Public Use
  Company Number: JP-ABBOTT-05P-087-0302547-00

PATIENT
  Age: 73 Year
  Sex: Male

DRUGS (8)
  1. WARFARIN SODIUM [Suspect]
     Indication: PULMONARY EMBOLISM
     Route: 048
     Dates: start: 20050512
  2. TAKEPRON OD TABLETS [Suspect]
     Indication: PROPHYLAXIS AGAINST GASTROINTESTINAL ULCER
     Route: 048
     Dates: start: 20050515, end: 20050518
  3. ACETYLSALICYLIC ACID SRT [Suspect]
     Indication: PULMONARY EMBOLISM
     Route: 048
     Dates: start: 20050512
  4. HEPARIN [Concomitant]
     Indication: DRUG USE FOR UNKNOWN INDICATION
     Dates: start: 20050512
  5. UROKINASE [Concomitant]
     Indication: DRUG USE FOR UNKNOWN INDICATION
     Route: 050
     Dates: start: 20050512
  6. CEFAMEZIN [Concomitant]
     Indication: DRUG USE FOR UNKNOWN INDICATION
     Route: 050
     Dates: start: 20050512
  7. SUCRALFATE [Concomitant]
     Indication: DRUG USE FOR UNKNOWN INDICATION
     Route: 048
     Dates: start: 20050512
  8. FUROSEMIDE [Concomitant]
     Indication: DRUG USE FOR UNKNOWN INDICATION
     Route: 048
     Dates: start: 20050515

REACTIONS (4)
  - C-REACTIVE PROTEIN INCREASED [None]
  - INTERSTITIAL LUNG DISEASE [None]
  - RASH GENERALISED [None]
  - WHITE BLOOD CELL COUNT INCREASED [None]
